FAERS Safety Report 4806472-2 (Version None)
Quarter: 2005Q4

REPORT INFORMATION
  Report Type: 
  Country: None (occurrence: None)
  Receive Date: 20051019
  Receipt Date: 20051007
  Transmission Date: 20060501
  Serious: Yes (Other)
  Sender: FDA-Public Use
  Company Number: 2005130493

PATIENT
  Age: 37 Year
  Sex: Female
  Weight: 53.5244 kg

DRUGS (3)
  1. DIFLUCAN [Suspect]
     Indication: FUNGAL INFECTION
     Dosage: 150 MG (150 MG, 1 IN 1 D), ORAL
     Route: 048
     Dates: start: 19990101
  2. DIFLUCAN [Suspect]
     Indication: VULVOVAGINAL DISCOMFORT
     Dosage: 150 MG (150 MG, 1 IN 1 D), ORAL
     Route: 048
     Dates: start: 19990101
  3. CLARINEX [Concomitant]

REACTIONS (4)
  - DISEASE RECURRENCE [None]
  - FUNGAL INFECTION [None]
  - PSYCHOSOMATIC DISEASE [None]
  - VULVOVAGINAL DISCOMFORT [None]
